FAERS Safety Report 8300384-8 (Version None)
Quarter: 2012Q2

REPORT INFORMATION
  Report Type: 
  Country: None (occurrence: None)
  Receive Date: 20120420
  Receipt Date: 20120412
  Transmission Date: 20120825
  Serious: Yes (Hospitalization, Other)
  Sender: FDA-Public Use
  Company Number: US-JNJFOC-20070801687

PATIENT
  Sex: Male

DRUGS (72)
  1. METHOTREXATE [Suspect]
     Dosage: AT WEEK 23
     Route: 048
     Dates: start: 20061004
  2. METHOTREXATE [Suspect]
     Dosage: AT WEEK 24
     Route: 048
     Dates: start: 20061011
  3. METHOTREXATE [Suspect]
     Dosage: AT WEEK 25
     Route: 048
     Dates: start: 20061018
  4. METHOTREXATE [Suspect]
     Dosage: AT WEEK 30
     Route: 048
     Dates: start: 20061122
  5. METHOTREXATE [Suspect]
     Dosage: AT WEEK 40
     Route: 048
     Dates: start: 20070131
  6. METHOTREXATE [Suspect]
     Dosage: AT WEEK 42
     Route: 048
     Dates: start: 20070214
  7. METHOTREXATE [Suspect]
     Dosage: AT WEEK 44
     Route: 048
     Dates: start: 20070228
  8. METHOTREXATE [Suspect]
     Dosage: AT WEEK 47
     Route: 048
     Dates: start: 20070321
  9. METHOTREXATE [Suspect]
     Dosage: AT WEEK 58
     Route: 048
     Dates: start: 20070606
  10. METHOTREXATE [Suspect]
     Dosage: AT WEEK 60
     Route: 048
     Dates: start: 20070620
  11. METHOTREXATE [Suspect]
     Dosage: AT WEEK 2
     Route: 048
     Dates: start: 20060510
  12. METHOTREXATE [Suspect]
     Dosage: AT WEEK 14
     Route: 048
     Dates: start: 20060802
  13. METHOTREXATE [Suspect]
     Dosage: AT WEEK 15
     Route: 048
     Dates: start: 20060809
  14. METHOTREXATE [Suspect]
     Dosage: AT WEEK 19
     Route: 048
     Dates: start: 20060906
  15. METHOTREXATE [Suspect]
     Dosage: AT WEEK 21
     Route: 048
     Dates: start: 20060920
  16. METHOTREXATE [Suspect]
     Dosage: AT WEEK 29
     Route: 048
     Dates: start: 20061115
  17. METHOTREXATE [Suspect]
     Dosage: AT WEEK 32
     Route: 048
     Dates: start: 20061206
  18. METHOTREXATE [Suspect]
     Dosage: AT WEEK 33
     Route: 048
     Dates: start: 20061213
  19. METHOTREXATE [Suspect]
     Dosage: AT WEEK 35
     Route: 048
     Dates: start: 20061227
  20. METHOTREXATE [Suspect]
     Dosage: AT WEEK 36
     Route: 048
     Dates: start: 20070103
  21. METHOTREXATE [Suspect]
     Dosage: AT WEEK 39
     Route: 048
     Dates: start: 20070124
  22. METHOTREXATE [Suspect]
     Dosage: AT WEEK 59
     Route: 048
     Dates: start: 20070613
  23. PREDNISONE TAB [Concomitant]
     Route: 048
     Dates: start: 20060123
  24. GOLIMUMAB [Suspect]
     Dosage: AT WEEK 56
     Route: 058
     Dates: start: 20070523
  25. METHOTREXATE [Suspect]
     Dosage: AT WEEK 8
     Route: 048
     Dates: start: 20060621
  26. METHOTREXATE [Suspect]
     Dosage: AT WEEK 16
     Route: 048
     Dates: start: 20060816
  27. METHOTREXATE [Suspect]
     Dosage: AT WEEK 17
     Route: 048
     Dates: start: 20060823
  28. METHOTREXATE [Suspect]
     Dosage: AT WEEK 41
     Route: 048
     Dates: start: 20070207
  29. METHOTREXATE [Suspect]
     Dosage: AT WEEK 48
     Route: 048
     Dates: start: 20070328
  30. METHOTREXATE [Suspect]
     Dosage: AT WEEK 50
     Route: 048
     Dates: start: 20070411
  31. METHOTREXATE [Suspect]
     Dosage: AT WEEK 53
     Route: 048
     Dates: start: 20070502
  32. METHOTREXATE [Suspect]
     Dosage: AT WEEK 62
     Route: 048
     Dates: start: 20070704
  33. GOLIMUMAB [Suspect]
     Dosage: AT WEEK 52
     Route: 058
     Dates: start: 20070620
  34. METHOTREXATE [Suspect]
     Dosage: AT WEEK 6
     Route: 048
     Dates: start: 20060607
  35. METHOTREXATE [Suspect]
     Dosage: AT WEEK 11
     Route: 048
     Dates: start: 20060712
  36. METHOTREXATE [Suspect]
     Dosage: AT WEEK 13
     Route: 048
     Dates: start: 20060726
  37. METHOTREXATE [Suspect]
     Dosage: AT WEEK 22
     Route: 048
     Dates: start: 20060927
  38. METHOTREXATE [Suspect]
     Dosage: AT WEEK 43
     Route: 048
     Dates: start: 20070221
  39. METHOTREXATE [Suspect]
     Dosage: AT WEEK 45
     Route: 048
     Dates: start: 20070307
  40. METHOTREXATE [Suspect]
     Dosage: AT WEEK 56
     Route: 048
     Dates: start: 20070523
  41. METHOTREXATE [Suspect]
     Indication: RHEUMATOID ARTHRITIS
     Dosage: AT WEEK 0
     Route: 048
     Dates: start: 20060426
  42. METHOTREXATE [Suspect]
     Dosage: AT WEEK 1
     Route: 048
     Dates: start: 20060503
  43. METHOTREXATE [Suspect]
     Dosage: AT WEEK 5
     Route: 048
     Dates: start: 20060531
  44. METHOTREXATE [Suspect]
     Dosage: AT WEEK 12
     Route: 048
     Dates: start: 20060719
  45. METHOTREXATE [Suspect]
     Dosage: AT WEEK 20
     Route: 048
     Dates: start: 20060913
  46. METHOTREXATE [Suspect]
     Dosage: AT WEEK 27
     Route: 048
     Dates: start: 20061101
  47. METHOTREXATE [Suspect]
     Dosage: AT WEEK 28
     Route: 048
     Dates: start: 20061108
  48. METHOTREXATE [Suspect]
     Dosage: AT WEEK 49
     Route: 048
     Dates: start: 20070404
  49. METHOTREXATE [Suspect]
     Dosage: AT WEEK 57
     Route: 048
     Dates: start: 20070530
  50. METHOTREXATE [Suspect]
     Dosage: AT WEEK 61
     Route: 048
     Dates: start: 20070627
  51. IMODIUM [Concomitant]
     Dosage: PRN
     Route: 048
     Dates: start: 20050601
  52. TYLENOL ARTHRITIS [Concomitant]
     Dosage: PRN
     Route: 048
     Dates: start: 20060328
  53. GOLIMUMAB [Suspect]
     Indication: RHEUMATOID ARTHRITIS
     Route: 058
     Dates: start: 20070426
  54. METHOTREXATE [Suspect]
     Dosage: AT WEEK 10
     Route: 048
     Dates: start: 20060705
  55. METHOTREXATE [Suspect]
     Dosage: AT WEEK 18
     Route: 048
     Dates: start: 20060830
  56. METHOTREXATE [Suspect]
     Dosage: AT WEEK 26
     Route: 048
     Dates: start: 20061025
  57. METHOTREXATE [Suspect]
     Dosage: AT WEEK 37
     Route: 048
     Dates: start: 20070110
  58. METHOTREXATE [Suspect]
     Dosage: AT WEEK 51
     Route: 048
     Dates: start: 20070418
  59. METHOTREXATE [Suspect]
     Dosage: AT WEEK 55
     Route: 048
     Dates: start: 20070516
  60. METHOTREXATE [Suspect]
     Dosage: AT WEEK 3
     Route: 048
     Dates: start: 20060517
  61. METHOTREXATE [Suspect]
     Dosage: AT WEEK 34
     Route: 048
     Dates: start: 20061220
  62. METHOTREXATE [Suspect]
     Dosage: AT WEEK 46
     Route: 048
     Dates: start: 20070314
  63. METHOTREXATE [Suspect]
     Dosage: AT WEEK 52
     Route: 048
     Dates: start: 20070425
  64. METHOTREXATE [Suspect]
     Dosage: AT WEEK 54
     Route: 048
     Dates: start: 20070509
  65. FOLIC ACID [Concomitant]
     Route: 048
     Dates: start: 20060411
  66. METHOTREXATE [Suspect]
     Dosage: AT WEEK 4
     Route: 048
     Dates: start: 20060524
  67. METHOTREXATE [Suspect]
     Dosage: AT WEEK 7
     Route: 048
     Dates: start: 20060614
  68. METHOTREXATE [Suspect]
     Dosage: AT WEEK 9
     Route: 048
     Dates: start: 20060628
  69. METHOTREXATE [Suspect]
     Dosage: AT WEEK 31
     Route: 048
     Dates: start: 20061129
  70. METHOTREXATE [Suspect]
     Dosage: AT WEEK 38
     Route: 048
     Dates: start: 20070117
  71. METHOTREXATE [Suspect]
     Dosage: AT WEEK 63
     Route: 048
     Dates: start: 20070711
  72. PRILOSEC [Concomitant]
     Route: 048
     Dates: start: 20060719

REACTIONS (1)
  - NON-SMALL CELL LUNG CANCER [None]
